FAERS Safety Report 5192403-5 (Version None)
Quarter: 2006Q4

REPORT INFORMATION
  Report Type: 
  Country: None (occurrence: None)
  Receive Date: 20061227
  Receipt Date: 20061215
  Transmission Date: 20070319
  Serious: Yes (Other)
  Sender: FDA-Public Use
  Company Number: US-PFIZER INC-2006154798

PATIENT
  Sex: Female
  Weight: 61.2 kg

DRUGS (12)
  1. CHANTIX [Suspect]
     Indication: SMOKING CESSATION THERAPY
     Dates: start: 20060901, end: 20060901
  2. PREDNISONE TAB [Suspect]
     Indication: DYSPNOEA
  3. REQUIP [Suspect]
     Indication: MUSCLE TIGHTNESS
  4. ADVAIR DISKUS 100/50 [Concomitant]
  5. SPIRIVA [Concomitant]
  6. ALBUTEROL [Concomitant]
  7. MUCINEX [Concomitant]
  8. ZOCOR [Concomitant]
  9. DILTIAZEM HCL [Concomitant]
  10. EFFEXOR [Concomitant]
  11. CHROMAGEN [Concomitant]
  12. DOXYCYCLINE [Concomitant]

REACTIONS (7)
  - ABASIA [None]
  - CHEST DISCOMFORT [None]
  - CHRONIC OBSTRUCTIVE PULMONARY DISEASE [None]
  - DYSPHONIA [None]
  - DYSPNOEA [None]
  - FEELING ABNORMAL [None]
  - INFECTION [None]
